FAERS Safety Report 20709841 (Version 1)
Quarter: 2022Q2

REPORT INFORMATION
  Report Type: Spontaneous
  Country: ES (occurrence: ES)
  Receive Date: 20220414
  Receipt Date: 20220414
  Transmission Date: 20220721
  Serious: Yes (Life-Threatening)
  Sender: FDA-Public Use
  Company Number: None

PATIENT
  Age: 79 Year
  Sex: Male

DRUGS (11)
  1. RITUXIMAB [Suspect]
     Active Substance: RITUXIMAB
     Indication: Lymphoma
     Dosage: 740.0 MG SINGLE DOSE
     Route: 042
     Dates: start: 20220330
  2. CYANOCOBALAMIN [Concomitant]
     Active Substance: CYANOCOBALAMIN
     Indication: Pernicious anaemia
     Dosage: 1.0 MG EVERY 30 DAYS
     Route: 030
     Dates: start: 20191212
  3. HALOPERIDOL [Concomitant]
     Active Substance: HALOPERIDOL
     Indication: Pain in extremity
     Dosage: 0.4 MG BREAKFAST ,DINNER
     Route: 048
     Dates: start: 20220303
  4. LORMETAZEPAM CINFA [Concomitant]
     Indication: Insomnia
     Dosage: 2.0 MG, 1X/DAY (2.0 MG EVERY 24 H NIGHT)
     Route: 048
     Dates: start: 20220113
  5. FOLIFERRON [FERROUS FUMARATE;FOLIC ACID] [Concomitant]
     Indication: Anaemia
     Dosage: 1.0 DF, 3X/DAY (1.0 PILLS BEFORE BREAKFAST, LUNCH AND DINNER)
     Route: 048
     Dates: start: 20211216
  6. FOLIC ACID [Concomitant]
     Active Substance: FOLIC ACID
     Indication: Anaemia
     Dosage: 5.0 MG, 1X/DAY (5.0 MG BEFORE BREAKFAST)
     Route: 048
     Dates: start: 20220114
  7. METAMIZOLE SODIUM [Concomitant]
     Active Substance: METAMIZOLE SODIUM
     Indication: Arthritis
     Dosage: 575.0 MG, 1X/DAY (575.0 MG EVERY 24 H   )
     Route: 048
     Dates: start: 20121027
  8. CITALOPRAM HYDROBROMIDE [Concomitant]
     Active Substance: CITALOPRAM HYDROBROMIDE
     Indication: Adjustment disorder
     Dosage: 10.0 MG, 1X/DAY (10.0 MG EVERY 24 H NIGHT)
     Route: 048
     Dates: start: 20211222
  9. ENALAPRIL [Concomitant]
     Active Substance: ENALAPRIL
     Indication: Essential hypertension
     Dosage: 20.0 MG, 1X/DAY (BREAKFAST)
     Route: 048
     Dates: start: 20110624
  10. CETIRIZINA MYLAN [Concomitant]
     Indication: Hypersensitivity
     Dosage: 10.0 MG, 3X/DAY (10.0 MG BEFORE BREAKFAST, LUNCH AND DINNER)
     Route: 048
     Dates: start: 20210826
  11. PREDNISONE [Concomitant]
     Active Substance: PREDNISONE
     Indication: Anaemia
     Dosage: 30.0 MG, 1X/DAY (BREAKFAST)
     Route: 048
     Dates: start: 20220219, end: 20220320

REACTIONS (1)
  - Intestinal perforation [Recovering/Resolving]

NARRATIVE: CASE EVENT DATE: 20220330
